FAERS Safety Report 9162830 (Version 1)
Quarter: 2013Q1

REPORT INFORMATION
  Report Type: Spontaneous
  Country: US (occurrence: US)
  Receive Date: 20130314
  Receipt Date: 20130314
  Transmission Date: 20140127
  Serious: No
  Sender: FDA-Public Use
  Company Number: US-B.I. PHARMACEUTICALS,INC./RIDGEFIELD-2013-BI-06491BP

PATIENT
  Age: 73 Year
  Sex: Male
  Weight: 91 kg

DRUGS (5)
  1. SPIRIVA [Suspect]
     Indication: CHRONIC OBSTRUCTIVE PULMONARY DISEASE
     Dosage: 18 MCG
     Route: 055
     Dates: start: 201301
  2. SPIRIVA [Suspect]
     Route: 048
     Dates: start: 20130307, end: 20130307
  3. OTC FOR ALLERGY RELIEF [Concomitant]
     Indication: SEASONAL ALLERGY
  4. EDARBI [Concomitant]
     Indication: HYPERTENSION
     Route: 048
  5. CIALIS [Concomitant]
     Indication: ERECTILE DYSFUNCTION
     Dosage: 2.5 MG
     Route: 048

REACTIONS (1)
  - Incorrect route of drug administration [Recovered/Resolved]
